FAERS Safety Report 9999290 (Version 1)
Quarter: 2014Q1

REPORT INFORMATION
  Report Type: Spontaneous
  Country: US (occurrence: None)
  Receive Date: 20140311
  Receipt Date: 20140311
  Transmission Date: 20141002
  Serious: Yes (Congenital Anomaly)
  Sender: FDA-Public Use
  Company Number: None

PATIENT
  Age: 28 Year
  Sex: Female
  Weight: 63.5 kg

DRUGS (1)
  1. EFFEXOR XR [Suspect]
     Indication: BIPOLAR DISORDER
     Dosage: 75 MG --1 CAP
     Route: 048

REACTIONS (7)
  - Pregnancy [None]
  - Talipes [None]
  - Heart disease congenital [None]
  - Dandy-Walker syndrome [None]
  - Abortion induced [None]
  - Emotional disorder [None]
  - Exposure during pregnancy [None]
